FAERS Safety Report 5599339-6 (Version None)
Quarter: 2008Q1

REPORT INFORMATION
  Report Type: 
  Country: None (occurrence: None)
  Receive Date: 20080122
  Receipt Date: 20080110
  Transmission Date: 20080703
  Serious: Yes (Other)
  Sender: FDA-Public Use
  Company Number: GB-PFIZER INC-2008004809

PATIENT
  Sex: Female

DRUGS (1)
  1. LIPITOR [Suspect]
     Route: 048

REACTIONS (4)
  - ARTHRALGIA [None]
  - BACK PAIN [None]
  - PAIN [None]
  - PAIN IN EXTREMITY [None]
